FAERS Safety Report 6322098-6 (Version None)
Quarter: 2009Q3

REPORT INFORMATION
  Report Type: 
  Country: None (occurrence: None)
  Receive Date: 20090824
  Receipt Date: 20090817
  Transmission Date: 20100115
  Serious: Yes (Hospitalization)
  Sender: FDA-Public Use
  Company Number: US-JNJFOC-20071204144

PATIENT
  Sex: Female
  Weight: 77.11 kg

DRUGS (5)
  1. ORTHO EVRA [Suspect]
     Indication: CONTRACEPTION
     Route: 062
  2. BENADRYL [Concomitant]
  3. EXCEDRIN [Concomitant]
  4. TYLENOL (CAPLET) [Concomitant]
  5. CLARITIN [Concomitant]

REACTIONS (4)
  - CEREBRAL HAEMORRHAGE [None]
  - CEREBRAL INFARCTION [None]
  - CONVULSION [None]
  - TRANSVERSE SINUS THROMBOSIS [None]
